FAERS Safety Report 14088776 (Version 1)
Quarter: 2017Q4

REPORT INFORMATION
  Report Type: Spontaneous
  Country: DK (occurrence: DK)
  Receive Date: 20171013
  Receipt Date: 20171013
  Transmission Date: 20180321
  Serious: Yes (Other)
  Sender: FDA-Public Use
  Company Number: DK-INCYTE CORPORATION-2017IN008773

PATIENT

DRUGS (3)
  1. ZOVIR [Concomitant]
     Active Substance: ACYCLOVIR
     Indication: HERPES ZOSTER
     Route: 065
     Dates: start: 20161215
  2. CYKLOKAPRON [Concomitant]
     Active Substance: TRANEXAMIC ACID
     Indication: MENORRHAGIA
     Dosage: 500 MG, TID
     Route: 048
     Dates: start: 20170619
  3. JAKAVI [Suspect]
     Active Substance: RUXOLITINIB
     Indication: MYELOFIBROSIS
     Dosage: 20 MG, BID
     Route: 048
     Dates: start: 20150622

REACTIONS (1)
  - Eye infection toxoplasmal [Not Recovered/Not Resolved]

NARRATIVE: CASE EVENT DATE: 20170608
